FAERS Safety Report 9324809 (Version 1)
Quarter: 2013Q2

REPORT INFORMATION
  Report Type: Spontaneous
  Country: GB (occurrence: None)
  Receive Date: 20130529
  Receipt Date: 20130529
  Transmission Date: 20140414
  Serious: Yes (Other)
  Sender: FDA-Public Use
  Company Number: 2013AP005450

PATIENT
  Age: 65 Year
  Sex: Female

DRUGS (3)
  1. RISPERIDONE [Suspect]
  2. SALBUTAMOL (SALBUTAMOL) [Concomitant]
  3. TIOTROPIUM BROMIDE (TIOTROPIUM BROMIDE) [Concomitant]

REACTIONS (1)
  - Cystoid macular oedema [None]
